FAERS Safety Report 16089730 (Version 1)
Quarter: 2019Q1

REPORT INFORMATION
  Report Type: Report from Study
  Country: ES (occurrence: ES)
  Receive Date: 20190319
  Receipt Date: 20190319
  Transmission Date: 20190418
  Serious: Yes (Hospitalization)
  Sender: FDA-Public Use
  Company Number: ES-PFIZER INC-2019110687

PATIENT
  Age: 6 Year
  Sex: Female
  Weight: 19.5 kg

DRUGS (4)
  1. KIDROLASE [Suspect]
     Active Substance: ASPARAGINASE
     Indication: PRECURSOR T-LYMPHOBLASTIC LYMPHOMA/LEUKAEMIA STAGE III
     Dosage: 8700 IU, EVERY 3 DAYS
     Route: 042
     Dates: start: 20171030, end: 20171117
  2. DAUNORUBICIN HCL [Suspect]
     Active Substance: DAUNORUBICIN HYDROCHLORIDE
     Indication: PRECURSOR T-LYMPHOBLASTIC LYMPHOMA/LEUKAEMIA STAGE III
     Dosage: 26 MG, WEEKLY
     Route: 042
     Dates: start: 20171026, end: 20171116
  3. PREDNISONE. [Suspect]
     Active Substance: PREDNISONE
     Indication: PRECURSOR T-LYMPHOBLASTIC LYMPHOMA/LEUKAEMIA STAGE III
     Dosage: 16 MG, 3X/DAY
     Route: 048
     Dates: start: 20171019, end: 20171120
  4. VINCRISTINE SULFATE. [Suspect]
     Active Substance: VINCRISTINE SULFATE
     Indication: PRECURSOR T-LYMPHOBLASTIC LYMPHOMA/LEUKAEMIA STAGE III
     Dosage: 1.3 MG, WEEKLY
     Route: 042
     Dates: start: 20171026, end: 20171116

REACTIONS (3)
  - Respiratory syncytial virus infection [Recovered/Resolved]
  - Porphyria acute [Recovered/Resolved]
  - Campylobacter infection [Recovered/Resolved]

NARRATIVE: CASE EVENT DATE: 20171117
